FAERS Safety Report 7669896-4 (Version None)
Quarter: 2011Q3

REPORT INFORMATION
  Report Type: 
  Country: None (occurrence: None)
  Receive Date: 20110808
  Receipt Date: 20110727
  Transmission Date: 20111222
  Serious: Yes (Other)
  Sender: FDA-Public Use
  Company Number: PHHY2011AU64526

PATIENT
  Sex: Female

DRUGS (2)
  1. GLEEVEC [Suspect]
     Indication: CHRONIC MYELOID LEUKAEMIA
     Dosage: 400 MG,
     Route: 048
     Dates: start: 20100301, end: 20110201
  2. GLEEVEC [Suspect]
     Dosage: 600 MG, UNK
     Dates: start: 20110201

REACTIONS (2)
  - HYPERAEMIA [None]
  - OEDEMA PERIPHERAL [None]
